FAERS Safety Report 17505376 (Version 1)
Quarter: 2020Q1

REPORT INFORMATION
  Report Type: Spontaneous
  Country: US (occurrence: US)
  Receive Date: 20200305
  Receipt Date: 20200305
  Transmission Date: 20200409
  Serious: Yes (Hospitalization, Other)
  Sender: FDA-Public Use
  Company Number: US-JNJFOC-20200300945

PATIENT
  Age: 50 Year
  Sex: Male

DRUGS (2)
  1. HEPARIN [Suspect]
     Active Substance: HEPARIN SODIUM
  2. RIVAROXABAN [Suspect]
     Active Substance: RIVAROXABAN
     Indication: DEEP VEIN THROMBOSIS
     Route: 048

REACTIONS (8)
  - Flank pain [Unknown]
  - Pleuritic pain [Recovered/Resolved]
  - Product administration error [Unknown]
  - Adrenal haemorrhage [Unknown]
  - Dyspnoea [Unknown]
  - Adrenal insufficiency [Unknown]
  - Labelled drug-drug interaction medication error [Unknown]
  - Hypotension [Recovering/Resolving]
